FAERS Safety Report 20770572 (Version 1)
Quarter: 2022Q2

REPORT INFORMATION
  Report Type: Spontaneous
  Country: US (occurrence: None)
  Receive Date: 20220429
  Receipt Date: 20220429
  Transmission Date: 20220721
  Serious: Yes (Hospitalization)
  Sender: FDA-Public Use
  Company Number: None

PATIENT
  Age: 58 Year
  Sex: Female
  Weight: 123 kg

DRUGS (1)
  1. LURASIDONE [Suspect]
     Active Substance: LURASIDONE
     Dosage: FREQUENCY : DAILY;?
     Route: 048
     Dates: start: 20210331

REACTIONS (2)
  - Type 2 diabetes mellitus [None]
  - Hyperglycaemic hyperosmolar nonketotic syndrome [None]

NARRATIVE: CASE EVENT DATE: 20220427
